FAERS Safety Report 16531396 (Version 1)
Quarter: 2019Q3

REPORT INFORMATION
  Report Type: Spontaneous
  Country: US (occurrence: US)
  Receive Date: 20190705
  Receipt Date: 20190705
  Transmission Date: 20191004
  Serious: No
  Sender: FDA-Public Use
  Company Number: US-BAYER-2019-120313

PATIENT
  Age: 90 Year
  Sex: Female
  Weight: 70 kg

DRUGS (19)
  1. METOPROLOL. [Concomitant]
     Active Substance: METOPROLOL
  2. BIOFREEZE [CAMPHOR;ISOPROPANOL;MENTHOL] [Concomitant]
  3. ALIGN [Concomitant]
     Active Substance: BIFIDOBACTERIUM LONGUM SUBSP. INFANTIS
  4. CALCIUM [Concomitant]
     Active Substance: CALCIUM
  5. FISH OIL [Concomitant]
     Active Substance: FISH OIL
  6. PREMARIN [Concomitant]
     Active Substance: ESTROGENS, CONJUGATED
  7. ASCORBIC ACID. [Concomitant]
     Active Substance: ASCORBIC ACID
  8. JANUVIA [Concomitant]
     Active Substance: SITAGLIPTIN PHOSPHATE
  9. DORZOLAMIDE/TIMOLOL [DORZOLAMIDE HYDROCHLORIDE;TIMOLOL MALEATE] [Concomitant]
  10. PREDNISOLONE. [Concomitant]
     Active Substance: PREDNISOLONE
  11. PIOGLITAZONE. [Concomitant]
     Active Substance: PIOGLITAZONE
  12. VITAMIN D NOS [Concomitant]
     Active Substance: VITAMIN D NOS
     Dosage: 0.5 DF
  13. ELIQUIS [Concomitant]
     Active Substance: APIXABAN
  14. CIPRO [Concomitant]
     Active Substance: CIPROFLOXACIN HYDROCHLORIDE
  15. PRILOSEC [Concomitant]
     Active Substance: OMEPRAZOLE MAGNESIUM
  16. CRANBERRY [VACCINIUM SPP.] [Concomitant]
  17. TRAVATAN [Concomitant]
     Active Substance: TRAVOPROST
  18. MIRALAX [Suspect]
     Active Substance: POLYETHYLENE GLYCOL 3350
     Indication: CONSTIPATION
     Dosage: 0.5 DF
     Route: 048
     Dates: start: 20190623
  19. SYNTHROID [Concomitant]
     Active Substance: LEVOTHYROXINE SODIUM

REACTIONS (5)
  - Abnormal faeces [Unknown]
  - Product use in unapproved indication [Unknown]
  - Off label use [Unknown]
  - Dyschezia [Unknown]
  - Incorrect dose administered [None]

NARRATIVE: CASE EVENT DATE: 20190623
